FAERS Safety Report 14750087 (Version 2)
Quarter: 2019Q1

REPORT INFORMATION
  Report Type: Report from Study
  Country: ES (occurrence: ES)
  Receive Date: 20180412
  Receipt Date: 20190206
  Transmission Date: 20190417
  Serious: Yes (Other)
  Sender: FDA-Public Use
  Company Number: ES-ACCORD-065436

PATIENT
  Age: 47 Year
  Sex: Female

DRUGS (6)
  1. TACROLIMUS. [Suspect]
     Active Substance: TACROLIMUS
     Indication: IMMUNOSUPPRESSION
  2. VALGANCICLOVIR/VALGANCICLOVIR HYDROCHLORIDE [Suspect]
     Active Substance: VALGANCICLOVIR
     Indication: INFECTION
     Dosage: FOR 2 WEEKS
  3. FOSCARNET [Suspect]
     Active Substance: FOSCARNET
     Indication: INFECTION
     Dosage: HIGH-DOSE FOS90-100 MG TWICE DAILY FOR 20 DAYS
  4. MYCOPHENOLIC ACID. [Suspect]
     Active Substance: MYCOPHENOLIC ACID
     Indication: IMMUNOSUPPRESSION
  5. BASILIXIMAB [Suspect]
     Active Substance: BASILIXIMAB
     Indication: RENAL TRANSPLANT
  6. GANCICLOVIR. [Suspect]
     Active Substance: GANCICLOVIR
     Indication: INFECTION
     Dosage: STARTED AT HIGH DOSES FOR 8?DAYS

REACTIONS (9)
  - Neutropenia [Unknown]
  - Nephrogenic diabetes insipidus [Unknown]
  - Cytomegalovirus infection [Recovered/Resolved]
  - Leukopenia [Unknown]
  - Hypomagnesaemia [Unknown]
  - Drug resistance [Unknown]
  - Drug ineffective [Unknown]
  - Pathogen resistance [None]
  - Haematotoxicity [None]
